FAERS Safety Report 10517958 (Version 2)
Quarter: 2014Q4

REPORT INFORMATION
  Report Type: Spontaneous
  Country: US (occurrence: US)
  Receive Date: 20141015
  Receipt Date: 20141106
  Transmission Date: 20150528
  Serious: Yes (Hospitalization)
  Sender: FDA-Public Use
  Company Number: US-BIOGENIDEC-2014BI104790

PATIENT
  Age: 44 Year
  Sex: Female

DRUGS (2)
  1. AVONEX [Suspect]
     Active Substance: INTERFERON BETA-1A
     Indication: MULTIPLE SCLEROSIS
     Route: 030
     Dates: start: 20030101
  2. AVONEX [Suspect]
     Active Substance: INTERFERON BETA-1A
     Indication: MULTIPLE SCLEROSIS
     Route: 030
     Dates: start: 20040123, end: 20130726

REACTIONS (13)
  - Appendix disorder [Recovered/Resolved]
  - Multiple sclerosis [Unknown]
  - Feeling abnormal [Recovered/Resolved]
  - Appendicitis perforated [Recovered/Resolved]
  - Dysgeusia [Recovered/Resolved]
  - Myopia [Unknown]
  - Pelvic abscess [Recovered/Resolved]
  - General symptom [Unknown]
  - Candida infection [Recovered/Resolved]
  - Drug ineffective [Unknown]
  - Food intolerance [Unknown]
  - Fungal infection [Recovered/Resolved]
  - Irritability [Recovered/Resolved]

NARRATIVE: CASE EVENT DATE: 2013
